FAERS Safety Report 5512898-4 (Version None)
Quarter: 2007Q4

REPORT INFORMATION
  Report Type: 
  Country: None (occurrence: None)
  Receive Date: 20071112
  Receipt Date: 20071109
  Transmission Date: 20080405
  Serious: Yes (Life-Threatening, Hospitalization, Disabling)
  Sender: FDA-Public Use
  Company Number: B0056566A

PATIENT
  Age: 38 Year
  Sex: Female
  Weight: 54 kg

DRUGS (9)
  1. ONDANSETRON HYDROCHLORIDE [Suspect]
     Dosage: 4MG TWICE PER DAY
     Route: 048
     Dates: start: 19980502, end: 19980502
  2. CYCLOPHOSPHAMIDE [Suspect]
     Route: 065
     Dates: start: 19971108, end: 19980502
  3. MESNA [Concomitant]
     Route: 048
  4. ENALAPRIL MALEATE [Concomitant]
     Indication: HYPERTENSION
     Dosage: 5MG PER DAY
     Route: 048
  5. LEVOTHYROXINE SODIUM [Concomitant]
     Indication: HYPERTHYROIDISM
     Dosage: 150MCG PER DAY
     Route: 048
  6. BUMETANIDE [Concomitant]
     Dosage: 1MG PER DAY
     Route: 048
  7. PREDNISOLONE [Concomitant]
     Indication: SYSTEMIC LUPUS ERYTHEMATOSUS
     Dosage: 5MG PER DAY
     Route: 048
  8. BENZTROPINE [Concomitant]
     Route: 065
  9. DEXAMETHASONE [Concomitant]
     Route: 065

REACTIONS (13)
  - ALANINE AMINOTRANSFERASE INCREASED [None]
  - ASPARTATE AMINOTRANSFERASE INCREASED [None]
  - BLOOD ALKALINE PHOSPHATASE INCREASED [None]
  - BLOOD BILIRUBIN INCREASED [None]
  - FLUSHING [None]
  - GAMMA-GLUTAMYLTRANSFERASE INCREASED [None]
  - HEPATIC NECROSIS [None]
  - HEPATITIS [None]
  - JAUNDICE [None]
  - LETHARGY [None]
  - NAUSEA [None]
  - PROTHROMBIN TIME PROLONGED [None]
  - PURPURA [None]
